FAERS Safety Report 8622425 (Version 3)
Quarter: 2015Q1

REPORT INFORMATION
  Report Type: Spontaneous
  Country: US (occurrence: US)
  Receive Date: 20120619
  Receipt Date: 20150316
  Transmission Date: 20150721
  Serious: Yes (Hospitalization, Other)
  Sender: FDA-Public Use
  Company Number: US-ROCHE-784215

PATIENT
  Sex: Male
  Weight: 56.75 kg

DRUGS (4)
  1. ACCUTANE [Suspect]
     Active Substance: ISOTRETINOIN
     Indication: ACNE
     Route: 065
     Dates: start: 1997, end: 1998
  2. ACCUTANE [Suspect]
     Active Substance: ISOTRETINOIN
     Route: 065
     Dates: start: 199901, end: 199905
  3. ZOLOFT [Concomitant]
     Active Substance: SERTRALINE HYDROCHLORIDE
  4. VIOXX [Concomitant]
     Active Substance: ROFECOXIB

REACTIONS (6)
  - Inflammatory bowel disease [Unknown]
  - Depression [Unknown]
  - Stress [Unknown]
  - Intestinal obstruction [Unknown]
  - Colitis ulcerative [Unknown]
  - Irritable bowel syndrome [Unknown]

NARRATIVE: CASE EVENT DATE: 2001
